FAERS Safety Report 14786549 (Version 2)
Quarter: 2018Q3

REPORT INFORMATION
  Report Type: Spontaneous
  Country: US (occurrence: US)
  Receive Date: 20180420
  Receipt Date: 20180808
  Transmission Date: 20181010
  Serious: Yes (Other)
  Sender: FDA-Public Use
  Company Number: US-ALLERGAN-1821415US

PATIENT
  Sex: Female

DRUGS (1)
  1. LILETTA [Suspect]
     Active Substance: LEVONORGESTREL
     Indication: PRODUCT USED FOR UNKNOWN INDICATION
     Dosage: 52 MG
     Route: 015
     Dates: start: 201801

REACTIONS (5)
  - Tubal rupture [Unknown]
  - Drug ineffective [Unknown]
  - Ectopic pregnancy [Unknown]
  - Abortion spontaneous [Unknown]
  - Uterine haemorrhage [Recovering/Resolving]
